FAERS Safety Report 10195688 (Version 2)
Quarter: 2014Q2

REPORT INFORMATION
  Report Type: Report from Study
  Country: FR (occurrence: FR)
  Receive Date: 20140527
  Receipt Date: 20140527
  Transmission Date: 20141212
  Serious: Yes (Hospitalization)
  Sender: FDA-Public Use
  Company Number: FR-ROCHE-1161438

PATIENT
  Age: 54 Year
  Sex: Female

DRUGS (8)
  1. RITUXIMAB [Suspect]
     Indication: RHEUMATOID ARTHRITIS
     Route: 042
     Dates: start: 20061009
  2. TOCILIZUMAB [Suspect]
     Indication: RHEUMATOID ARTHRITIS
     Route: 065
     Dates: start: 20100719
  3. METHOTREXATE [Concomitant]
  4. LEFLUNOMIDE [Concomitant]
  5. CORTANCYL [Concomitant]
  6. DEXTROPROPOXYPHEN [Concomitant]
  7. PARACETAMOL [Concomitant]
     Route: 065
     Dates: start: 20071229
  8. ABATACEPT [Concomitant]

REACTIONS (8)
  - Pemphigoid [Not Recovered/Not Resolved]
  - Acarodermatitis [Not Recovered/Not Resolved]
  - Drug hypersensitivity [Not Recovered/Not Resolved]
  - Bronchitis [Recovered/Resolved]
  - Hypercholesterolaemia [Not Recovered/Not Resolved]
  - Skin lesion [Not Recovered/Not Resolved]
  - Hypertension [Not Recovered/Not Resolved]
  - Bronchitis [Recovered/Resolved]
